FAERS Safety Report 8926900 (Version 1)
Quarter: 2012Q4

REPORT INFORMATION
  Report Type: 
  Country: US (occurrence: US)
  Receive Date: 20121127
  Receipt Date: 20121127
  Transmission Date: 20130627
  Serious: No
  Sender: FDA-Public Use
  Company Number: US-009507513-1211USA006399

PATIENT
  Sex: Male

DRUGS (1)
  1. CHLOR-TRIMETON 12 HOUR [Suspect]
     Indication: SLEEP DISORDER
     Dosage: 1 mg, Unknown
     Route: 048
     Dates: end: 20121107

REACTIONS (2)
  - Thrombocytopenia [Unknown]
  - Off label use [Unknown]
